FAERS Safety Report 8812156 (Version 1)
Quarter: 2012Q4

REPORT INFORMATION
  Report Type: Report from Study
  Country: BE (occurrence: BE)
  Receive Date: 20120927
  Receipt Date: 20120927
  Transmission Date: 20130627
  Serious: Yes (Other)
  Sender: FDA-Public Use
  Company Number: BE-ROCHE-1128823

PATIENT
  Age: 62 Year
  Sex: Female
  Weight: 53 kg

DRUGS (16)
  1. XELODA [Suspect]
     Indication: BREAST CANCER METASTATIC
     Route: 042
     Dates: start: 20101102, end: 20110110
  2. HERCEPTIN [Suspect]
     Indication: BREAST CANCER METASTATIC
     Route: 042
     Dates: start: 20100202, end: 20100518
  3. HERCEPTIN [Suspect]
     Route: 042
     Dates: start: 20100518, end: 20101117
  4. HERCEPTIN [Suspect]
     Route: 042
     Dates: start: 20101102, end: 20110110
  5. HERCEPTIN [Suspect]
     Route: 042
     Dates: start: 20110526, end: 20110803
  6. 5-FLUOROURACIL [Suspect]
     Indication: BREAST CANCER METASTATIC
     Route: 042
     Dates: start: 20110214, end: 20110511
  7. 5-FLUOROURACIL [Suspect]
     Route: 042
     Dates: start: 20111201, end: 20120229
  8. LAPATINIB [Suspect]
     Indication: BREAST CANCER METASTATIC
     Route: 042
     Dates: start: 20120328, end: 20120725
  9. CYCLOPHOSPHAMIDE [Suspect]
     Indication: BREAST CANCER METASTATIC
     Route: 042
     Dates: start: 20111201, end: 20120229
  10. VINORELBINE [Suspect]
     Indication: BREAST CANCER METASTATIC
     Route: 042
     Dates: start: 20110214, end: 20110511
  11. LEUCOVORIN CALCIUM [Suspect]
     Indication: BREAST CANCER METASTATIC
     Route: 042
     Dates: start: 20110214, end: 20110511
  12. CAELYX [Suspect]
     Indication: BREAST CANCER METASTATIC
     Route: 042
     Dates: start: 20110526, end: 20110803
  13. GEMCITABINE [Suspect]
     Indication: BREAST CANCER METASTATIC
     Route: 042
     Dates: start: 20110818, end: 20111109
  14. CISPLATIN [Suspect]
     Indication: BREAST CANCER METASTATIC
     Route: 042
     Dates: start: 20110818, end: 20111109
  15. METHOTREXATE [Suspect]
     Indication: BREAST CANCER METASTATIC
     Route: 042
     Dates: start: 20111201, end: 20120229
  16. TAXOL [Suspect]
     Indication: BREAST CANCER METASTATIC
     Route: 042
     Dates: start: 20120321, end: 20120725

REACTIONS (5)
  - Gastrointestinal toxicity [Unknown]
  - Disease progression [Unknown]
  - Metastases to lung [Unknown]
  - Metastases to central nervous system [Unknown]
  - Vomiting [Unknown]
